FAERS Safety Report 8370401-8 (Version None)
Quarter: 2012Q2

REPORT INFORMATION
  Report Type: 
  Country: None (occurrence: None)
  Receive Date: 20120518
  Receipt Date: 20120508
  Transmission Date: 20120825
  Serious: Yes (Hospitalization, Other)
  Sender: FDA-Public Use
  Company Number: US-JNJFOC-20120206352

PATIENT
  Sex: Female
  Weight: 87.09 kg

DRUGS (11)
  1. METHOTREXATE [Concomitant]
     Indication: RHEUMATOID ARTHRITIS
     Route: 058
  2. MECLIZINE [Suspect]
     Indication: DIZZINESS
     Dosage: 1-2 TABLETS THREE TIMES DAILY
     Route: 048
     Dates: start: 20120109, end: 20120101
  3. CALCIUM AND VITAMIN D [Concomitant]
     Indication: OSTEOPOROSIS
  4. CYMBALTA [Concomitant]
  5. PLAQUENIL [Concomitant]
     Indication: RHEUMATOID ARTHRITIS
     Route: 048
  6. FOLIC ACID [Concomitant]
     Indication: RHEUMATOID ARTHRITIS
     Route: 048
  7. ALENDRONATE SODIUM [Concomitant]
     Indication: OSTEOPOROSIS
     Route: 048
  8. CELEBREX [Concomitant]
     Indication: RHEUMATOID ARTHRITIS
     Route: 048
  9. REMICADE [Suspect]
     Indication: RHEUMATOID ARTHRITIS
     Route: 042
     Dates: start: 20111020
  10. REMICADE [Suspect]
     Route: 042
     Dates: start: 20120105
  11. HYDROCODONE BITARTRATE AND ACETAMINOPHEN [Concomitant]
     Indication: PAIN
     Dosage: DOSE 10/325 EVERY 4-6 HOURS

REACTIONS (6)
  - HYPERTENSION [None]
  - DIZZINESS [None]
  - CENTRAL NERVOUS SYSTEM LESION [None]
  - MUSCLE TWITCHING [None]
  - CEREBRAL MICROANGIOPATHY [None]
  - FATIGUE [None]
